FAERS Safety Report 17189816 (Version 2)
Quarter: 2020Q1

REPORT INFORMATION
  Report Type: Spontaneous
  Country: US (occurrence: US)
  Receive Date: 20191223
  Receipt Date: 20200128
  Transmission Date: 20200409
  Serious: No
  Sender: FDA-Public Use
  Company Number: US-SAGE-2019SAGE000084

PATIENT

DRUGS (1)
  1. ZULRESSO [Suspect]
     Active Substance: BREXANOLONE
     Indication: PERINATAL DEPRESSION
     Dosage: UNK
     Route: 042
     Dates: start: 201911

REACTIONS (8)
  - Drug ineffective [Unknown]
  - Menstruation irregular [Unknown]
  - Panic attack [Recovered/Resolved]
  - Anxiety [Recovering/Resolving]
  - Alopecia [Unknown]
  - Perinatal depression [Unknown]
  - Obsessive-compulsive symptom [Unknown]
  - Intrusive thoughts [Unknown]
